FAERS Safety Report 13319080 (Version 1)
Quarter: 2017Q1

REPORT INFORMATION
  Report Type: Spontaneous
  Country: US (occurrence: US)
  Receive Date: 20170309
  Receipt Date: 20170309
  Transmission Date: 20170428
  Serious: No
  Sender: FDA-Public Use
  Company Number: None

PATIENT
  Sex: Female

DRUGS (1)
  1. HUMIRA [Suspect]
     Active Substance: ADALIMUMAB
     Indication: CROHN^S DISEASE
     Dosage: 80MG ON DAY 1, 40MG ON DAY 8 THEN 40MG
     Route: 058
     Dates: start: 20170131, end: 20170228

REACTIONS (2)
  - Rash generalised [None]
  - Urticaria [None]
